FAERS Safety Report 5303155-X (Version None)
Quarter: 2007Q2

REPORT INFORMATION
  Report Type: 
  Country: None (occurrence: None)
  Receive Date: 20070420
  Receipt Date: 20070420
  Transmission Date: 20071010
  Serious: Yes (Other)
  Sender: FDA-Public Use
  Company Number: US-GLAXOSMITHKLINE-A0647912A

PATIENT
  Age: 60 Year
  Sex: Female

DRUGS (1)
  1. SUPER POLIGRIP [Suspect]
     Indication: DENTURE WEARER

REACTIONS (1)
  - CHOKING [None]
